FAERS Safety Report 4631459-2 (Version None)
Quarter: 2005Q2

REPORT INFORMATION
  Report Type: 
  Country: None (occurrence: None)
  Receive Date: 20050407
  Receipt Date: 20050321
  Transmission Date: 20051028
  Serious: Yes (Other)
  Sender: FDA-Public Use
  Company Number: GBWYE525422MAR05

PATIENT
  Sex: Female

DRUGS (1)
  1. EFFEXOR XR [Suspect]
     Dosage: 1 TABLET
     Dates: start: 19980101, end: 19980101

REACTIONS (4)
  - HYPOKINESIA [None]
  - IMPAIRED DRIVING ABILITY [None]
  - MUSCLE SPASMS [None]
  - ROAD TRAFFIC ACCIDENT [None]
